FAERS Safety Report 21967390 (Version 3)
Quarter: 2025Q1

REPORT INFORMATION
  Report Type: Spontaneous
  Country: US (occurrence: US)
  Receive Date: 20230208
  Receipt Date: 20250228
  Transmission Date: 20250408
  Serious: Yes (Hospitalization, Other)
  Sender: PFIZER
  Company Number: US-PFIZER INC-PV202200124723

PATIENT
  Age: 66 Year
  Sex: Female
  Weight: 104 kg

DRUGS (32)
  1. PREMARIN [Suspect]
     Active Substance: ESTROGENS, CONJUGATED
     Dosage: INSERT INTO THE VAGINA DAILY, DISP: 30 G, RFL: 3
     Route: 067
     Dates: start: 20221118
  2. CHOLECALCIFEROL [Concomitant]
     Active Substance: CHOLECALCIFEROL
     Dosage: 50 MCG (2,000 UNIT) CAPSULE, TAKE 1 CAPSULE (2,000 UNITS TOTAL) DAILY
     Route: 048
     Dates: start: 20211112
  3. KLONOPIN [Concomitant]
     Active Substance: CLONAZEPAM
     Dosage: NIGHTLY
     Route: 048
     Dates: start: 20181025
  4. DECADRON [Concomitant]
     Active Substance: DEXAMETHASONE
     Dosage: 2 TABLETS TWICE A DAY FOR 3 DAYS BEGINNING THE DAY BEFORE EACH CHEMOTHERAPY TREATMENT
     Route: 048
     Dates: start: 20221104, end: 20221221
  5. VOLTAREN [Concomitant]
     Active Substance: DICLOFENAC SODIUM
     Indication: Pain
     Route: 061
     Dates: start: 20220204, end: 20230118
  6. DICLOFENAC [Concomitant]
     Active Substance: DICLOFENAC
     Dosage: DISP: 90 TABLET, RFL: 3
     Route: 048
     Dates: start: 20220516
  7. BENTYL [Concomitant]
     Active Substance: DICYCLOMINE HYDROCHLORIDE
     Dosage: DISP: 120 CAPSULE, RFL: 0
     Route: 048
     Dates: start: 20221130, end: 20221230
  8. DEPAKOTE [Concomitant]
     Active Substance: DIVALPROEX SODIUM
     Dosage: 250 MG, DAILY
     Route: 048
     Dates: start: 19900101
  9. TRUSOPT [Concomitant]
     Active Substance: DORZOLAMIDE HYDROCHLORIDE
     Dosage: INTO THE RIGHT EYE
     Route: 047
  10. ARNUITY ELLIPTA [Concomitant]
     Active Substance: FLUTICASONE FUROATE
     Dosage: 200 MCG/ACTUATION BLISTER WITH DEVICE, INHALE 1 PUFF DAILY; RINSE MOUTH AFTER EACH INHALATION
     Dates: start: 20221107
  11. FLONASE [Concomitant]
     Active Substance: FLUTICASONE PROPIONATE
     Dosage: 50 MCG/ACTUATION, ADMINISTER 2 SPRAYS INTO EACH NOSTRIL DAILY, DISP: 48 G, RFL: 3
     Route: 045
     Dates: start: 20221027
  12. LASIX [Concomitant]
     Active Substance: FUROSEMIDE
     Indication: Swelling
     Route: 048
     Dates: start: 20221202, end: 20221209
  13. LASIX [Concomitant]
     Active Substance: FUROSEMIDE
     Indication: Oedema
  14. LEVAQUIN [Concomitant]
     Active Substance: LEVOFLOXACIN
     Dosage: EVERY OTHER DAY FOR 8 DAYS, DISP: 4 TABLET, RFL: 0
     Route: 048
     Dates: start: 20221201, end: 20221209
  15. SYNTHROID [Concomitant]
     Active Substance: LEVOTHYROXINE SODIUM
     Dosage: DAILY, IN THE MORNING ON AN EMPTY STOMACH, DISP: 90 TABLET, RFL: 3
     Route: 048
     Dates: start: 20220118
  16. MAGNESIUM [Concomitant]
     Active Substance: MAGNESIUM
     Dosage: 200 MG, DAILY
     Route: 048
  17. FLAGYL [Concomitant]
     Active Substance: METRONIDAZOLE\METRONIDAZOLE HYDROCHLORIDE
     Dosage: EVERY 8 (EIGHT) HOURS FOR 9 DAYS, DISP: 27 TABLET, RFL: 0
     Route: 048
     Dates: start: 20221130, end: 20221209
  18. ZOFRAN [Concomitant]
     Active Substance: ONDANSETRON HYDROCHLORIDE
     Indication: Nausea
     Dates: start: 20221104
  19. ZOFRAN [Concomitant]
     Active Substance: ONDANSETRON HYDROCHLORIDE
     Indication: Vomiting
  20. PROTONIX [Concomitant]
     Active Substance: PANTOPRAZOLE SODIUM
     Dosage: FOR 14 DAYS, DISP: 14 TABLET, RFL: 1
     Route: 048
     Dates: start: 20221118, end: 20221215
  21. COMPAZINE [Concomitant]
     Active Substance: PROCHLORPERAZINE MALEATE
     Indication: Nausea
     Route: 048
     Dates: start: 20221104
  22. COMPAZINE [Concomitant]
     Active Substance: PROCHLORPERAZINE MALEATE
     Indication: Vomiting
  23. CRESTOR [Concomitant]
     Active Substance: ROSUVASTATIN CALCIUM
     Dosage: DAILY, DISP: 90 TABLET, RFL: 3
     Route: 048
     Dates: start: 20220407
  24. ALDACTONE [Concomitant]
     Active Substance: SPIRONOLACTONE
     Dosage: DAILY, DISP: 90 TABLET, RFL: 3
     Route: 048
     Dates: start: 20220118, end: 20230120
  25. DETROL [Concomitant]
     Active Substance: TOLTERODINE TARTRATE
     Indication: Bladder spasm
     Dates: start: 20220909, end: 20230111
  26. LEVSIN [Concomitant]
     Active Substance: HYOSCYAMINE SULFATE
     Indication: Cystitis interstitial
  27. XOPENEX HFA [Concomitant]
     Active Substance: LEVALBUTEROL TARTRATE
     Indication: Wheezing
  28. XOPENEX HFA [Concomitant]
     Active Substance: LEVALBUTEROL TARTRATE
     Indication: Dyspnoea
  29. CYTOXAN [Concomitant]
     Active Substance: CYCLOPHOSPHAMIDE
  30. CYTOXAN [Concomitant]
     Active Substance: CYCLOPHOSPHAMIDE
     Dates: start: 20221116
  31. TAXOTERE [Concomitant]
     Active Substance: DOCETAXEL
  32. TAXOTERE [Concomitant]
     Active Substance: DOCETAXEL
     Dates: start: 20221116

REACTIONS (63)
  - Febrile neutropenia [Unknown]
  - Diverticulitis [Unknown]
  - Cholecystitis acute [Not Recovered/Not Resolved]
  - Cellulitis [Not Recovered/Not Resolved]
  - Coeliac disease [Not Recovered/Not Resolved]
  - Polyneuropathy [Not Recovered/Not Resolved]
  - Stress fracture [Not Recovered/Not Resolved]
  - Foot fracture [Not Recovered/Not Resolved]
  - Glaucoma [Not Recovered/Not Resolved]
  - Rectal haemorrhage [Not Recovered/Not Resolved]
  - Anal haemorrhage [Not Recovered/Not Resolved]
  - Mitral valve incompetence [Not Recovered/Not Resolved]
  - Urinary retention [Not Recovered/Not Resolved]
  - Pelvic pain [Unknown]
  - Perineal pain [Unknown]
  - Peripheral swelling [Unknown]
  - Blister [Unknown]
  - Abdominal pain [Unknown]
  - Decreased appetite [Unknown]
  - Asthenia [Unknown]
  - Fatigue [Not Recovered/Not Resolved]
  - Blood urea decreased [Unknown]
  - Blood calcium decreased [Unknown]
  - Glomerular filtration rate decreased [Unknown]
  - White blood cell count increased [Unknown]
  - Haemoglobin decreased [Unknown]
  - Haematocrit decreased [Unknown]
  - Constipation [Not Recovered/Not Resolved]
  - Colorectal adenoma [Not Recovered/Not Resolved]
  - Arthralgia [Not Recovered/Not Resolved]
  - Abscess [Not Recovered/Not Resolved]
  - Depression [Not Recovered/Not Resolved]
  - Dysuria [Not Recovered/Not Resolved]
  - Pain in extremity [Not Recovered/Not Resolved]
  - Benign neoplasm [Not Recovered/Not Resolved]
  - Benign neoplasm of adrenal gland [Not Recovered/Not Resolved]
  - Cystitis [Not Recovered/Not Resolved]
  - Cough [Not Recovered/Not Resolved]
  - Renal disorder [Not Recovered/Not Resolved]
  - Ureteral disorder [Not Recovered/Not Resolved]
  - Defaecation urgency [Not Recovered/Not Resolved]
  - Female reproductive tract disorder [Not Recovered/Not Resolved]
  - Gastroenteritis [Not Recovered/Not Resolved]
  - Haematuria [Not Recovered/Not Resolved]
  - Hirsutism [Not Recovered/Not Resolved]
  - Hypersomnia [Not Recovered/Not Resolved]
  - Illness [Not Recovered/Not Resolved]
  - Balance disorder [Not Recovered/Not Resolved]
  - Mobility decreased [Not Recovered/Not Resolved]
  - Pollakiuria [Not Recovered/Not Resolved]
  - Lymphocytosis [Not Recovered/Not Resolved]
  - Nasal congestion [Not Recovered/Not Resolved]
  - Nocturia [Not Recovered/Not Resolved]
  - Osteoarthritis [Not Recovered/Not Resolved]
  - Osteoporosis [Not Recovered/Not Resolved]
  - Liver disorder [Not Recovered/Not Resolved]
  - Synovial disorder [Not Recovered/Not Resolved]
  - Palpitations [Not Recovered/Not Resolved]
  - Tendon disorder [Not Recovered/Not Resolved]
  - Abdominal pain upper [Not Recovered/Not Resolved]
  - Pruritus [Not Recovered/Not Resolved]
  - Rash [Not Recovered/Not Resolved]
  - Product prescribing error [Unknown]

NARRATIVE: CASE EVENT DATE: 20221206
